FAERS Safety Report 6877114-X (Version None)
Quarter: 2010Q3

REPORT INFORMATION
  Report Type: 
  Country: None (occurrence: None)
  Receive Date: 20100727
  Receipt Date: 20100723
  Transmission Date: 20110219
  Serious: Yes (Hospitalization, Disabling)
  Sender: FDA-Public Use
  Company Number: US-MERCK-1007USA01079

PATIENT
  Age: 30 Year
  Sex: Male

DRUGS (2)
  1. ISENTRESS [Suspect]
     Indication: HIV INFECTION
     Route: 048
     Dates: start: 20100401, end: 20100708
  2. TRUVADA [Concomitant]
     Route: 065

REACTIONS (4)
  - RASH [None]
  - RENAL FAILURE [None]
  - STEVENS-JOHNSON SYNDROME [None]
  - SWELLING FACE [None]
